FAERS Safety Report 10077562 (Version 1)
Quarter: 2014Q2

REPORT INFORMATION
  Report Type: Spontaneous
  Country: US (occurrence: US)
  Receive Date: 20140414
  Receipt Date: 20140414
  Transmission Date: 20141212
  Serious: No
  Sender: FDA-Public Use
  Company Number: US-BANPHARM-20131816

PATIENT
  Age: 56 Year
  Sex: Female
  Weight: 58.05 kg

DRUGS (4)
  1. NAPROXEN SODIUM 220 MG [Suspect]
     Indication: ARTHRITIS
     Dosage: 220 MG, BID,
     Route: 048
     Dates: start: 20131002, end: 20131014
  2. NAPROXEN SODIUM 220 MG [Suspect]
     Indication: ARTHRITIS
     Dosage: PRN,
     Route: 048
     Dates: start: 201308
  3. VITAMINS [Concomitant]
  4. ONE A DAY [Concomitant]
     Dates: start: 201308

REACTIONS (3)
  - Pruritus [Recovering/Resolving]
  - Incorrect drug administration duration [Recovering/Resolving]
  - Rash [Recovering/Resolving]
